FAERS Safety Report 7371735-6 (Version None)
Quarter: 2011Q1

REPORT INFORMATION
  Report Type: 
  Country: None (occurrence: None)
  Receive Date: 20110314
  Receipt Date: 20110307
  Transmission Date: 20110831
  Serious: Yes (Death, Other)
  Sender: FDA-Public Use
  Company Number: 110047

PATIENT
  Age: 58 Year
  Sex: Male

DRUGS (1)
  1. GOLYTELY [Suspect]
     Indication: COLONOSCOPY

REACTIONS (4)
  - TRAUMATIC BRAIN INJURY [None]
  - BRAIN OEDEMA [None]
  - FALL [None]
  - INTRACRANIAL PRESSURE INCREASED [None]
